FAERS Safety Report 4298772-2 (Version None)
Quarter: 2004Q1

REPORT INFORMATION
  Report Type: 
  Country: None (occurrence: None)
  Receive Date: 20040126
  Receipt Date: 20031021
  Transmission Date: 20041129
  Serious: No
  Sender: FDA-Public Use
  Company Number: USA031050412

PATIENT
  Age: 10 Year
  Sex: Male

DRUGS (2)
  1. STRATTERA [Suspect]
     Indication: ATTENTION DEFICIT/HYPERACTIVITY DISORDER
  2. TRILEPTAL [Concomitant]

REACTIONS (4)
  - ADJUSTMENT DISORDER [None]
  - CRYING [None]
  - PERSONALITY CHANGE [None]
  - TENSION [None]
